FAERS Safety Report 6108347-8 (Version None)
Quarter: 2009Q1

REPORT INFORMATION
  Report Type: 
  Country: None (occurrence: None)
  Receive Date: 20090309
  Receipt Date: 20090227
  Transmission Date: 20090719
  Serious: Yes (Hospitalization)
  Sender: FDA-Public Use
  Company Number: US-PURDUE-USA_2009_0037218

PATIENT
  Age: 70 Year
  Sex: Male
  Weight: 72 kg

DRUGS (15)
  1. MS CONTIN [Suspect]
     Indication: PAIN
     Dosage: 15 MG, Q12H
     Route: 048
     Dates: start: 20080101, end: 20080909
  2. SUNITINIB [Suspect]
     Indication: PROSTATE CANCER
     Dosage: UNK, SEE TEXT
  3. OXYCODONE HCL [Concomitant]
     Indication: PAIN
     Dates: start: 20020101
  4. COLACE [Concomitant]
  5. MIRALAX [Concomitant]
     Dates: start: 20080801
  6. DULCOLAX                           /00061602/ [Concomitant]
  7. OXYBUTYNIN CHLORIDE [Concomitant]
  8. IMDUR [Concomitant]
  9. ATENOLOL [Concomitant]
     Indication: HYPERTENSION
     Dates: start: 20020101
  10. UBIDECARENONE [Concomitant]
  11. BUPROPION HCL [Concomitant]
     Indication: DEPRESSION
     Dates: start: 20080901
  12. BUSPIRONE HCL [Concomitant]
  13. MEGACE [Concomitant]
  14. WELLBUTRIN [Concomitant]
     Indication: DEPRESSION
     Dates: start: 20080901
  15. LORAZEPAM [Concomitant]
     Indication: ANXIETY
     Dosage: UNK, UNK
     Dates: start: 20080701

REACTIONS (1)
  - DELIRIUM [None]
